FAERS Safety Report 7751037-6 (Version None)
Quarter: 2011Q3

REPORT INFORMATION
  Report Type: 
  Country: None (occurrence: None)
  Receive Date: 20110912
  Receipt Date: 20110829
  Transmission Date: 20111222
  Serious: Yes (Other)
  Sender: FDA-Public Use
  Company Number: 20110627

PATIENT
  Age: 17 Year
  Sex: Male

DRUGS (1)
  1. SODIUM THIOSULFATE [Suspect]
     Indication: PRODUCT USED FOR UNKNOWN INDICATION
     Dosage: 25 G/1.73M2 X 33 DOSES INTRAVENOUS
     Route: 042

REACTIONS (11)
  - ERYTHEMA [None]
  - NAUSEA [None]
  - OVERDOSE [None]
  - PAIN IN EXTREMITY [None]
  - LEG AMPUTATION [None]
  - OSTEONECROSIS [None]
  - PERIPHERAL ISCHAEMIA [None]
  - OFF LABEL USE [None]
  - VOMITING [None]
  - METABOLIC ACIDOSIS [None]
  - VENTRICULAR TACHYCARDIA [None]
